FAERS Safety Report 14406650 (Version 1)
Quarter: 2018Q1

REPORT INFORMATION
  Report Type: Spontaneous
  Country: US (occurrence: US)
  Receive Date: 20180118
  Receipt Date: 20180118
  Transmission Date: 20180509
  Serious: Yes (Other)
  Sender: FDA-Public Use
  Company Number: US-TEVA-2018-US-846072

PATIENT
  Age: 7 Year
  Sex: Female

DRUGS (1)
  1. METHYLPHENIDATE. [Suspect]
     Active Substance: METHYLPHENIDATE
     Indication: ATTENTION DEFICIT/HYPERACTIVITY DISORDER
     Route: 065
     Dates: start: 201711

REACTIONS (7)
  - Psychotic disorder [Unknown]
  - Product quality issue [Unknown]
  - Gait disturbance [Unknown]
  - Drug ineffective [Unknown]
  - Confusional state [Unknown]
  - Mydriasis [Unknown]
  - Speech disorder [Unknown]
